FAERS Safety Report 14524867 (Version 1)
Quarter: 2018Q1

REPORT INFORMATION
  Report Type: Spontaneous
  Country: US (occurrence: US)
  Receive Date: 20180213
  Receipt Date: 20180213
  Transmission Date: 20180509
  Serious: No
  Sender: FDA-Public Use
  Company Number: US-SERB S.A.S.-2041855

PATIENT
  Age: 71 Year
  Sex: Male

DRUGS (10)
  1. CARVEDILOL. [Concomitant]
     Active Substance: CARVEDILOL
  2. NOREPINEPHRINE. [Concomitant]
     Active Substance: NOREPINEPHRINE
  3. SIMVASTATIN. [Concomitant]
     Active Substance: SIMVASTATIN
  4. VASOPRESSIN. [Concomitant]
     Active Substance: VASOPRESSIN
  5. LISINOPRIL. [Concomitant]
     Active Substance: LISINOPRIL
  6. COLCHICINE. [Concomitant]
     Active Substance: COLCHICINE
  7. CITALOPRAM [Concomitant]
     Active Substance: CITALOPRAM HYDROBROMIDE
  8. BUDESONIDE/FORMOTEROL FUMARATE DEHYDRATE [Concomitant]
  9. ALLOPURINOL. [Concomitant]
     Active Substance: ALLOPURINOL
  10. CYANOKIT [Suspect]
     Active Substance: HYDROXOCOBALAMIN
     Indication: VASOPLEGIA SYNDROME
     Route: 041

REACTIONS (3)
  - Chromaturia [Recovered/Resolved]
  - Product use in unapproved indication [Recovered/Resolved]
  - Mean arterial pressure increased [Recovered/Resolved]
